FAERS Safety Report 14284256 (Version 1)
Quarter: 2017Q4

REPORT INFORMATION
  Report Type: Spontaneous
  Country: US (occurrence: US)
  Receive Date: 20171214
  Receipt Date: 20171214
  Transmission Date: 20180321
  Serious: No
  Sender: FDA-Public Use
  Company Number: PHEH2017US039258

PATIENT
  Sex: Female
  Weight: 68.27 kg

DRUGS (5)
  1. ONE-A-DAY NOS [Concomitant]
     Active Substance: MINERALS\VITAMINS
     Indication: PRODUCT USED FOR UNKNOWN INDICATION
     Dosage: UNK
     Route: 065
  2. MOCLOBEMIDE [Concomitant]
     Active Substance: MOCLOBEMIDE
     Indication: PRODUCT USED FOR UNKNOWN INDICATION
     Dosage: 3 DF, QD (ONE BY MOUTH IN THE MORNING AND TWO BY MOUTH AT NIGHT)
     Route: 048
  3. CHOLESTYRAMINE FOR ORAL SUSPENSION USP [Suspect]
     Active Substance: CHOLESTYRAMINE
     Indication: COLITIS
     Dosage: UNK UNK, QD (1/5 PACKETS)
     Route: 065
     Dates: start: 201707
  4. VITAMIN B COMPLEX [Concomitant]
     Active Substance: CYANOCOBALAMIN\DEXPANTHENOL\NIACINAMIDE\PYRIDOXINE HYDROCHLORIDE\RIBOFLAVIN 5^-PHOSPHATE SODIUM\THIAMINE HYDROCHLORIDE\VITAMIN B COMPLEX
     Indication: PRODUCT USED FOR UNKNOWN INDICATION
     Dosage: UNK
     Route: 065
  5. HEALTHY TRINITY [Concomitant]
     Indication: PROBIOTIC THERAPY
     Dosage: UNK UNK, QD (AT 06 PM)
     Route: 065

REACTIONS (2)
  - Drug effect decreased [Unknown]
  - Frequent bowel movements [Not Recovered/Not Resolved]
